FAERS Safety Report 8312257-5 (Version None)
Quarter: 2012Q2

REPORT INFORMATION
  Report Type: 
  Country: None (occurrence: None)
  Receive Date: 20120425
  Receipt Date: 20120417
  Transmission Date: 20120825
  Serious: Yes (Other)
  Sender: FDA-Public Use
  Company Number: US-CELGENEUS-163-21880-12042002

PATIENT
  Sex: Male
  Weight: 100 kg

DRUGS (2)
  1. REVLIMID [Suspect]
     Dosage: 15 MILLIGRAM
     Route: 048
  2. REVLIMID [Suspect]
     Indication: MULTIPLE MYELOMA
     Dosage: 25 MILLIGRAM
     Route: 048
     Dates: start: 20091101, end: 20110601

REACTIONS (2)
  - DIABETES MELLITUS [None]
  - MULTIPLE MYELOMA [None]
